FAERS Safety Report 6438086-5 (Version None)
Quarter: 2009Q4

REPORT INFORMATION
  Report Type: 
  Country: None (occurrence: None)
  Receive Date: 20091112
  Receipt Date: 20091104
  Transmission Date: 20100525
  Serious: Yes (Hospitalization)
  Sender: FDA-Public Use
  Company Number: US-ELI_LILLY_AND_COMPANY-US200911002480

PATIENT
  Sex: Male
  Weight: 96.145 kg

DRUGS (8)
  1. BYETTA [Suspect]
     Indication: TYPE 2 DIABETES MELLITUS
     Dosage: 5 UG, 2/D
     Route: 058
     Dates: start: 20070101
  2. BYETTA [Suspect]
     Dosage: 10 UG, 2/D
     Route: 058
  3. METFORMIN [Concomitant]
     Indication: TYPE 2 DIABETES MELLITUS
     Dosage: 500 MG, EACH MORNING
  4. FUROSEMIDE [Concomitant]
     Dosage: 40 MG, DAILY (1/D)
  5. COUMADIN [Concomitant]
     Dosage: 5 MG, DAILY (1/D)
  6. ZYPREXA                                 /SCH/ [Concomitant]
     Dosage: 2.5 MG, DAILY (1/D)
  7. DIGOXIN [Concomitant]
     Dosage: 0.125 MG, DAILY (1/D)
  8. METOPROLOL [Concomitant]
     Indication: BLOOD PRESSURE
     Dosage: 25 MG, 2/D

REACTIONS (4)
  - BLOOD DISORDER [None]
  - COUGH [None]
  - LUNG DISORDER [None]
  - RENAL CANCER [None]
